FAERS Safety Report 17422691 (Version 2)
Quarter: 2020Q2

REPORT INFORMATION
  Report Type: Report from Study
  Country: US (occurrence: US)
  Receive Date: 20200215
  Receipt Date: 20200408
  Transmission Date: 20200713
  Serious: No
  Sender: FDA-Public Use
  Company Number: NVSC2020US039351

PATIENT
  Age: 57 Year
  Sex: Female

DRUGS (1)
  1. COSENTYX [Suspect]
     Active Substance: SECUKINUMAB
     Indication: PSORIATIC ARTHROPATHY
     Route: 065

REACTIONS (2)
  - Pain in extremity [Unknown]
  - Arthralgia [Unknown]
